FAERS Safety Report 9702537 (Version 2)
Quarter: 2013Q4

REPORT INFORMATION
  Report Type: Spontaneous
  Country: JP (occurrence: JP)
  Receive Date: 20131121
  Receipt Date: 20131121
  Transmission Date: 20140711
  Serious: Yes (Other)
  Sender: FDA-Public Use
  Company Number: JP-JHP PHARMACEUTICALS, LLC-JHP201300624

PATIENT
  Age: 79 Year
  Sex: Male

DRUGS (4)
  1. DANTRIUM [Suspect]
     Indication: SPASTIC PARALYSIS
     Dosage: 150 MG, DAILY
     Route: 048
     Dates: start: 20130602, end: 20131018
  2. CEREDIST [Concomitant]
     Dosage: UNK
  3. INCREMIN [Concomitant]
     Dosage: UNK
  4. MEROPEN [Concomitant]
     Dosage: UNK

REACTIONS (3)
  - Sepsis [Unknown]
  - Hydronephrosis [Unknown]
  - Blood pressure fluctuation [Recovering/Resolving]
